FAERS Safety Report 19393168 (Version 1)
Quarter: 2021Q2

REPORT INFORMATION
  Report Type: Spontaneous
  Country: US (occurrence: US)
  Receive Date: 20210608
  Receipt Date: 20210608
  Transmission Date: 20210717
  Serious: Yes (Other)
  Sender: FDA-Public Use
  Company Number: None

PATIENT

DRUGS (2)
  1. CONCERTA [Suspect]
     Active Substance: METHYLPHENIDATE HYDROCHLORIDE
  2. DEXTROAMPHETAMINE 30 + 10 MG [Suspect]
     Active Substance: DEXTROAMPHETAMINE

REACTIONS (2)
  - Therapeutic product effect decreased [None]
  - Drug ineffective [None]
